FAERS Safety Report 10950440 (Version 1)
Quarter: 2015Q1

REPORT INFORMATION
  Report Type: Spontaneous
  Country: US (occurrence: US)
  Receive Date: 20150324
  Receipt Date: 20150324
  Transmission Date: 20150721
  Serious: Yes (Other)
  Sender: FDA-Public Use
  Company Number: US-ASTELLAS-2015US009388

PATIENT
  Age: 73 Year
  Sex: Male

DRUGS (1)
  1. XTANDI [Suspect]
     Active Substance: ENZALUTAMIDE
     Indication: PROSTATE CANCER
     Dosage: 160 MG,QD
     Route: 048
     Dates: start: 20141219, end: 20150302

REACTIONS (2)
  - Dyspepsia [Unknown]
  - Myalgia [Unknown]

NARRATIVE: CASE EVENT DATE: 20150302
